FAERS Safety Report 4831307-1 (Version None)
Quarter: 2005Q4

REPORT INFORMATION
  Report Type: 
  Country: None (occurrence: None)
  Receive Date: 20051116
  Receipt Date: 20051102
  Transmission Date: 20060501
  Serious: Yes (Other)
  Sender: FDA-Public Use
  Company Number: 8011374

PATIENT
  Age: 4 Year
  Sex: Male

DRUGS (5)
  1. KEPPRA [Suspect]
     Indication: CONVULSION
     Dosage: 2.5 ML 2/D PO
     Route: 048
     Dates: end: 20050629
  2. KEPPRA [Suspect]
     Indication: CONVULSION
     Dosage: 2.5 2/D PO
     Route: 048
     Dates: start: 20050630, end: 20050801
  3. KEPPRA [Suspect]
     Indication: CONVULSION
     Dosage: 2.5 ML 2/D PO
     Route: 048
     Dates: start: 20050802
  4. LAMICTAL [Concomitant]
  5. PHENOBARBITAL [Concomitant]

REACTIONS (3)
  - BLOOD CALCIUM INCREASED [None]
  - BLOOD SODIUM INCREASED [None]
  - DRUG DISPENSING ERROR [None]
